FAERS Safety Report 5418072-4 (Version None)
Quarter: 2007Q3

REPORT INFORMATION
  Report Type: 
  Country: None (occurrence: None)
  Receive Date: 20070817
  Receipt Date: 20070808
  Transmission Date: 20080115
  Serious: Yes (Death, Life-Threatening, Hospitalization)
  Sender: FDA-Public Use
  Company Number: FR-AMGEN-UK215697

PATIENT
  Sex: Male

DRUGS (4)
  1. ARANESP [Suspect]
     Indication: ANAEMIA OF MALIGNANT DISEASE
     Route: 058
     Dates: start: 20070118
  2. CISPLATIN [Concomitant]
     Route: 065
  3. TAXOTERE [Concomitant]
     Route: 065
  4. COUMADIN [Concomitant]
     Route: 065

REACTIONS (6)
  - CHEST PAIN [None]
  - COUGH [None]
  - DYSPNOEA [None]
  - GENERAL PHYSICAL HEALTH DETERIORATION [None]
  - INTRACARDIAC THROMBUS [None]
  - VENA CAVA THROMBOSIS [None]
